FAERS Safety Report 5593944-9 (Version None)
Quarter: 2008Q1

REPORT INFORMATION
  Report Type: 
  Country: None (occurrence: None)
  Receive Date: 20080114
  Receipt Date: 20071225
  Transmission Date: 20080703
  Serious: Yes (Hospitalization, Other)
  Sender: FDA-Public Use
  Company Number: 2008000034

PATIENT
  Age: 68 Year
  Sex: Male
  Weight: 65.1 kg

DRUGS (4)
  1. MACUGEN [Suspect]
     Indication: MACULAR DEGENERATION
     Dosage: (0.3 MG, Q6W), INTRA-VITREAL
     Dates: start: 20061018
  2. INDOCYANINE GREEN (INDOCYANINE GREEN) [Concomitant]
  3. FLUORESCITE [Concomitant]
  4. SODIUM CHLORIDE 0.9% [Concomitant]

REACTIONS (3)
  - CHOROIDAL NEOVASCULARISATION [None]
  - CONDITION AGGRAVATED [None]
  - MACULAR DEGENERATION [None]
